FAERS Safety Report 25100486 (Version 9)
Quarter: 2025Q3

REPORT INFORMATION
  Report Type: Spontaneous
  Country: US (occurrence: US)
  Receive Date: 20250320
  Receipt Date: 20250925
  Transmission Date: 20251021
  Serious: Yes (Other)
  Sender: IPSEN BIOPHARMACEUTICALS, INC.
  Company Number: US-IPSEN Group, Research and Development-2025-04541

PATIENT
  Age: 80 Year
  Sex: Female
  Weight: 70 kg

DRUGS (19)
  1. TAZVERIK [Suspect]
     Active Substance: TAZEMETOSTAT HYDROBROMIDE
     Indication: Product used for unknown indication
     Route: 048
     Dates: start: 20241017
  2. ATORVASTATIN CALCIUM [Concomitant]
     Active Substance: ATORVASTATIN CALCIUM
  3. BACTRIM [Concomitant]
     Active Substance: SULFAMETHOXAZOLE\TRIMETHOPRIM
  4. DULCOLAX [Concomitant]
  5. FOLIC ACID [Concomitant]
     Active Substance: FOLIC ACID
  6. HYDROXYCHLOROQUINE SULFATE [Concomitant]
     Active Substance: HYDROXYCHLOROQUINE SULFATE
  7. LASIX [Concomitant]
     Active Substance: FUROSEMIDE
  8. OMEPRAZOLE [Concomitant]
     Active Substance: OMEPRAZOLE
  9. ONDANSETRON [Concomitant]
     Active Substance: ONDANSETRON
  10. PREDNISONE [Concomitant]
     Active Substance: PREDNISONE
  11. VALACYCLOVIR [Concomitant]
     Active Substance: VALACYCLOVIR HYDROCHLORIDE
  12. VITAMIN B12 [Concomitant]
     Active Substance: CYANOCOBALAMIN
  13. VITAMIN D3 [Concomitant]
     Active Substance: CHOLECALCIFEROL
  14. ZYRTEC [Concomitant]
     Active Substance: CETIRIZINE HYDROCHLORIDE
  15. BIOTIN [Concomitant]
     Active Substance: BIOTIN
  16. CEFDINIR [Concomitant]
     Active Substance: CEFDINIR
  17. PEPCID [Concomitant]
     Active Substance: FAMOTIDINE
  18. AZELASTINE [Concomitant]
     Active Substance: AZELASTINE
  19. IPRATROPIUM [Concomitant]
     Active Substance: IPRATROPIUM

REACTIONS (6)
  - Breast cancer [Unknown]
  - Dyspepsia [Not Recovered/Not Resolved]
  - Alopecia [Not Recovered/Not Resolved]
  - Contusion [Not Recovered/Not Resolved]
  - Product supply issue [Unknown]
  - Cough [Not Recovered/Not Resolved]
